FAERS Safety Report 17419702 (Version 1)
Quarter: 2020Q1

REPORT INFORMATION
  Report Type: Spontaneous
  Country: IT (occurrence: IT)
  Receive Date: 20200214
  Receipt Date: 20200214
  Transmission Date: 20200409
  Serious: Yes (Other)
  Sender: FDA-Public Use
  Company Number: IT-TEVA-2020-IT-1185947

PATIENT
  Age: 35 Year
  Sex: Female

DRUGS (7)
  1. URBASON [Concomitant]
     Active Substance: METHYLPREDNISOLONE
  2. ORENCIA [Concomitant]
     Active Substance: ABATACEPT
  3. FOLINA [Concomitant]
  4. PANTOPRAZOLE [Concomitant]
     Active Substance: PANTOPRAZOLE
  5. DIBASE [Concomitant]
     Active Substance: CHOLECALCIFEROL
  6. ALENDRONATE SODIUM. [Concomitant]
     Active Substance: ALENDRONATE SODIUM
  7. METHOTREXATE. [Suspect]
     Active Substance: METHOTREXATE
     Indication: RHEUMATOID ARTHRITIS
     Dosage: 25 MG 1 WEEKS
     Route: 030
     Dates: start: 20191016, end: 20200129

REACTIONS (2)
  - Cholestasis [Not Recovered/Not Resolved]
  - Hypertransaminasaemia [Not Recovered/Not Resolved]

NARRATIVE: CASE EVENT DATE: 20200129
